FAERS Safety Report 7768455-2 (Version None)
Quarter: 2011Q3

REPORT INFORMATION
  Report Type: 
  Country: None (occurrence: None)
  Receive Date: 20110922
  Receipt Date: 20110615
  Transmission Date: 20111222
  Serious: No
  Sender: FDA-Public Use
  Company Number: US-ASTRAZENECA-2011SE37870

PATIENT
  Age: 59 Year
  Sex: Male
  Weight: 79.4 kg

DRUGS (12)
  1. SYNTHROID [Concomitant]
  2. SEROQUEL [Suspect]
     Indication: DEPRESSION
     Route: 048
  3. NEXIUM [Concomitant]
  4. CYMBALTA [Concomitant]
  5. METFORMIN [Concomitant]
  6. LORAZEPAM [Concomitant]
  7. NEURONTIN [Concomitant]
  8. TETRACYCLINE [Concomitant]
  9. ATENOLOL [Concomitant]
  10. QUINAPRIL HCL [Concomitant]
  11. SINGULAIR [Concomitant]
  12. TRICOR [Concomitant]

REACTIONS (4)
  - MALAISE [None]
  - FATIGUE [None]
  - DRUG DOSE OMISSION [None]
  - INSOMNIA [None]
